FAERS Safety Report 5382204-7 (Version None)
Quarter: 2007Q3

REPORT INFORMATION
  Report Type: 
  Country: None (occurrence: None)
  Receive Date: 20070709
  Receipt Date: 20070629
  Transmission Date: 20080115
  Serious: Yes (Life-Threatening, Hospitalization, Disabling, Other)
  Sender: FDA-Public Use
  Company Number: FR-JNJFOC-20070701125

PATIENT
  Age: 6 Year
  Sex: Female

DRUGS (2)
  1. TRAMADOL HCL [Suspect]
     Indication: DRUG USE FOR UNKNOWN INDICATION
     Route: 048
  2. NOCERTONE [Suspect]
     Indication: DRUG USE FOR UNKNOWN INDICATION
     Dosage: 15 DF
     Route: 048

REACTIONS (12)
  - BLOOD PRESSURE DECREASED [None]
  - BRAIN OEDEMA [None]
  - CARDIO-RESPIRATORY ARREST [None]
  - DYSPNOEA [None]
  - GRAND MAL CONVULSION [None]
  - HYPOTONIA [None]
  - MYDRIASIS [None]
  - OVERDOSE [None]
  - PYRAMIDAL TRACT SYNDROME [None]
  - SOMNOLENCE [None]
  - STATUS EPILEPTICUS [None]
  - VENTRICULAR TACHYCARDIA [None]
